FAERS Safety Report 15702935 (Version 3)
Quarter: 2019Q3

REPORT INFORMATION
  Report Type: Spontaneous
  Country: US (occurrence: US)
  Receive Date: 20181210
  Receipt Date: 20190709
  Transmission Date: 20191004
  Serious: No
  Sender: FDA-Public Use
  Company Number: US-BIOGEN-2018BI00667690

PATIENT
  Sex: Female

DRUGS (1)
  1. AVONEX [Suspect]
     Active Substance: INTERFERON BETA-1A
     Indication: MULTIPLE SCLEROSIS
     Route: 050
     Dates: start: 19971001

REACTIONS (12)
  - Nail bed disorder [Unknown]
  - Pyrexia [Unknown]
  - Pain [Unknown]
  - Bone pain [Unknown]
  - Musculoskeletal chest pain [Unknown]
  - Reaction to preservatives [Unknown]
  - Dyspnoea [Unknown]
  - Gait disturbance [Unknown]
  - Nausea [Unknown]
  - Back pain [Unknown]
  - Chills [Unknown]
  - Headache [Unknown]
